FAERS Safety Report 4894972-9 (Version None)
Quarter: 2006Q1

REPORT INFORMATION
  Report Type: 
  Country: None (occurrence: None)
  Receive Date: 20060130
  Receipt Date: 20050614
  Transmission Date: 20060701
  Serious: No
  Sender: FDA-Public Use
  Company Number: US-BRISTOL-MYERS SQUIBB COMPANY-13002373

PATIENT
  Age: 64 Year
  Sex: Female
  Weight: 147 kg

DRUGS (8)
  1. GLUCOPHAGE [Suspect]
     Indication: DIABETES MELLITUS
     Route: 048
  2. PLAVIX [Suspect]
     Indication: CARDIAC DISORDER
     Route: 048
  3. ISOSORBIDE MONONITRATE [Concomitant]
  4. METOPROLOL [Concomitant]
  5. LASIX [Concomitant]
  6. LEVOXYL [Concomitant]
  7. NAPROSYN [Concomitant]
  8. CLONIDINE [Concomitant]

REACTIONS (1)
  - RASH [None]
